FAERS Safety Report 24859153 (Version 1)
Quarter: 2025Q1

REPORT INFORMATION
  Report Type: Report from Study
  Country: US (occurrence: US)
  Receive Date: 20250118
  Receipt Date: 20250118
  Transmission Date: 20250408
  Serious: No
  Sender: ABBVIE
  Company Number: US-ABBVIE-6053850

PATIENT
  Age: 51 Year
  Sex: Female
  Weight: 125 kg

DRUGS (1)
  1. RINVOQ [Suspect]
     Active Substance: UPADACITINIB
     Indication: Ankylosing spondylitis
     Dosage: FORM STRENGTH:15 MILLIGRAM
     Route: 048
     Dates: start: 202408

REACTIONS (7)
  - Vitreous floaters [Recovering/Resolving]
  - Vision blurred [Recovering/Resolving]
  - Eye haemorrhage [Unknown]
  - Photopsia [Unknown]
  - Hypertension [Unknown]
  - Blood cholesterol increased [Unknown]
  - Thyroid disorder [Unknown]

NARRATIVE: CASE EVENT DATE: 20241215
